FAERS Safety Report 17575442 (Version 2)
Quarter: 2020Q3

REPORT INFORMATION
  Report Type: Spontaneous
  Country: US (occurrence: US)
  Receive Date: 20200324
  Receipt Date: 20200727
  Transmission Date: 20201102
  Serious: Yes (Hospitalization, Other)
  Sender: FDA-Public Use
  Company Number: US-AUROBINDO-AUR-APL-2020-015066

PATIENT
  Sex: Male

DRUGS (1)
  1. AMIODARONE HYDROCHLORIDE 200 MG TABLET [Suspect]
     Active Substance: AMIODARONE HYDROCHLORIDE
     Indication: ATRIAL FIBRILLATION
     Dosage: UNK
     Route: 065

REACTIONS (10)
  - Pulmonary toxicity [Unknown]
  - Cough [Unknown]
  - Chest pain [Unknown]
  - Lung disorder [Unknown]
  - Pneumonia [Unknown]
  - Asthenia [Unknown]
  - Respiratory failure [Unknown]
  - Fatigue [Unknown]
  - Off label use [Unknown]
  - Dyspnoea [Unknown]

NARRATIVE: CASE EVENT DATE: 201904
